FAERS Safety Report 8518217-3 (Version None)
Quarter: 2012Q3

REPORT INFORMATION
  Report Type: 
  Country: None (occurrence: None)
  Receive Date: 20120718
  Receipt Date: 20111114
  Transmission Date: 20120928
  Serious: No
  Sender: FDA-Public Use
  Company Number: US-BRISTOL-MYERS SQUIBB COMPANY-16229338

PATIENT
  Age: 67 Year
  Sex: Female
  Weight: 63 kg

DRUGS (1)
  1. WARFARIN SODIUM [Suspect]
     Indication: ATRIAL FIBRILLATION
     Dosage: APPROXIMATELY 6 YEARS AGO,ON 10NOV11 NIGHT 7.5MG AND 5MG DAILY

REACTIONS (4)
  - HYPOTONIA [None]
  - INTERNATIONAL NORMALISED RATIO ABNORMAL [None]
  - BONE LOSS [None]
  - WEIGHT INCREASED [None]
